FAERS Safety Report 10331114 (Version 11)
Quarter: 2015Q1

REPORT INFORMATION
  Report Type: Report from Study
  Country: DE (occurrence: DE)
  Receive Date: 20140722
  Receipt Date: 20150309
  Transmission Date: 20150720
  Serious: Yes (Hospitalization)
  Sender: FDA-Public Use
  Company Number: DE-ROCHE-1435238

PATIENT
  Age: 78 Year
  Sex: Male
  Weight: 80 kg

DRUGS (23)
  1. PERFALGAN [Concomitant]
     Active Substance: ACETAMINOPHEN
     Route: 042
     Dates: start: 20140506, end: 20140506
  2. CEFTAZIDIM [Concomitant]
     Active Substance: CEFTAZIDIME
     Route: 065
     Dates: start: 201407, end: 201407
  3. KLACID (GERMANY) [Concomitant]
     Route: 065
     Dates: start: 201407, end: 201407
  4. OBINUTUZUMAB [Suspect]
     Active Substance: OBINUTUZUMAB
     Indication: CHRONIC LYMPHOCYTIC LEUKAEMIA
     Dosage: 1000 MG IV ON DAYS 1/2 (SPLIT DOSE), 8 AND 15 OF CYCLE 1, AND ON DAY 1 OF CYCLES 2-6; ?DATE OF LAST
     Route: 042
     Dates: start: 20140505
  5. FERRO SANOL DUODENAL [Concomitant]
     Active Substance: FERROUS SULFATE\GLYCINE
     Route: 048
     Dates: start: 1940
  6. PARACETAMOL [Concomitant]
     Active Substance: ACETAMINOPHEN
     Indication: PROPHYLAXIS
     Dosage: LAST TAKEN ON 29/APR/2014
     Route: 048
     Dates: start: 20140505, end: 20140707
  7. DOXAZOSIN [Concomitant]
     Active Substance: DOXAZOSIN\DOXAZOSIN MESYLATE
     Route: 048
     Dates: start: 2011
  8. PREDNISOLUT [Concomitant]
     Active Substance: PREDNISOLONE
     Indication: PROPHYLAXIS
     Dosage: LAST TAKEN ON 29/APR/2014
     Route: 042
     Dates: start: 20140505, end: 20140707
  9. ONDANSETRON [Concomitant]
     Active Substance: ONDANSETRON
     Dosage: LAST TAKEN ON 29/APR/2014
     Route: 065
  10. CIPROFLOXACIN. [Concomitant]
     Active Substance: CIPROFLOXACIN
     Route: 065
     Dates: start: 201407, end: 201407
  11. OMEPRAZOL [Concomitant]
     Active Substance: OMEPRAZOLE
     Route: 048
     Dates: start: 1994
  12. DECORTIN [Concomitant]
     Active Substance: PREDNISONE
     Dosage: END DATE: /JUL/2014
     Route: 048
     Dates: start: 20140701
  13. LAXANS (BISACODYL) [Concomitant]
     Active Substance: BISACODYL
     Indication: PROPHYLAXIS
     Dosage: 5 DROPS
     Route: 048
     Dates: start: 201407
  14. MACROGOL [Concomitant]
     Active Substance: POLYETHYLENE GLYCOLS
     Indication: PROPHYLAXIS
     Dosage: 1 BAG
     Route: 048
  15. ZOFRAN [Concomitant]
     Active Substance: ONDANSETRON HYDROCHLORIDE
     Indication: PROPHYLAXIS
     Route: 042
     Dates: start: 20140505, end: 20140708
  16. KALINOR [Concomitant]
     Active Substance: POTASSIUM CITRATE
     Route: 048
     Dates: start: 201407, end: 201407
  17. SIMVASTATIN. [Concomitant]
     Active Substance: SIMVASTATIN
     Route: 048
     Dates: start: 1989
  18. FINASTERID [Concomitant]
     Route: 048
     Dates: start: 2011
  19. UNACID PD [Concomitant]
     Active Substance: SULTAMICILLIN TOSYLATE
     Route: 048
     Dates: start: 20140515, end: 20140520
  20. BENDAMUSTINE [Suspect]
     Active Substance: BENDAMUSTINE
     Indication: CHRONIC LYMPHOCYTIC LEUKAEMIA
     Dosage: 70 MG/M2 ON DAY 1 AND 2 OF EACH CYCLE; ?DATE OF LAST DOSE PRIOR TO SAE: 08/JUL/2014?THERAPY WAS DISC
     Route: 042
     Dates: start: 20140505
  21. BLEMAREN [Concomitant]
     Dosage: END DATE: /MAY/2014
     Route: 048
     Dates: start: 20140515
  22. TAVEGIL [Concomitant]
     Active Substance: CLEMASTINE FUMARATE
     Indication: PROPHYLAXIS
     Dosage: LAST TAKEN ON 29/APR/2014
     Route: 042
     Dates: start: 20140505, end: 20140707
  23. ERYTHROCYTE CONCENTRATE [Concomitant]
     Active Substance: HUMAN RED BLOOD CELL
     Route: 042
     Dates: start: 201407, end: 201407

REACTIONS (2)
  - Pulmonary embolism [Recovered/Resolved with Sequelae]
  - Pneumonia [Recovered/Resolved]

NARRATIVE: CASE EVENT DATE: 20140713
